FAERS Safety Report 6386627-9 (Version None)
Quarter: 2009Q3

REPORT INFORMATION
  Report Type: 
  Country: None (occurrence: None)
  Receive Date: 20090930
  Receipt Date: 20090930
  Transmission Date: 20100115
  Serious: No
  Sender: FDA-Public Use
  Company Number: None

PATIENT
  Age: 82 Year
  Sex: Male
  Weight: 57 kg

DRUGS (3)
  1. ALLOPURINOL [Suspect]
     Indication: PROPHYLAXIS
     Dosage: 300 MG EVERY DAY PO
     Route: 048
     Dates: start: 20090813, end: 20090823
  2. ALLOPURINOL [Suspect]
     Indication: TUMOUR LYSIS SYNDROME
     Dosage: 300 MG EVERY DAY PO
     Route: 048
     Dates: start: 20090813, end: 20090823
  3. CHLORAMBUCIL [Suspect]
     Indication: CHRONIC LYMPHOCYTIC LEUKAEMIA
     Dosage: 40MG ONCE PO
     Route: 048
     Dates: start: 20090813, end: 20090813

REACTIONS (7)
  - ARTHROPOD BITE [None]
  - DERMATITIS EXFOLIATIVE [None]
  - EXCORIATION [None]
  - HERPES VIRUS INFECTION [None]
  - PRURITUS [None]
  - SKIN NECROSIS [None]
  - URTICARIA [None]
